FAERS Safety Report 6858535-8 (Version None)
Quarter: 2010Q3

REPORT INFORMATION
  Report Type: 
  Country: None (occurrence: None)
  Receive Date: 20100719
  Receipt Date: 20080220
  Transmission Date: 20110219
  Serious: No
  Sender: FDA-Public Use
  Company Number: US-PFIZER INC-2008014017

PATIENT
  Sex: Female
  Weight: 81.6 kg

DRUGS (3)
  1. CHANTIX [Suspect]
     Indication: SMOKING CESSATION THERAPY
     Dates: start: 20070901
  2. WARFARIN SODIUM [Concomitant]
     Indication: THROMBOSIS
  3. EFFEXOR [Concomitant]

REACTIONS (1)
  - ABNORMAL DREAMS [None]
